FAERS Safety Report 6808482-2 (Version None)
Quarter: 2010Q2

REPORT INFORMATION
  Report Type: 
  Country: None (occurrence: None)
  Receive Date: 20100629
  Receipt Date: 20090625
  Transmission Date: 20101027
  Serious: Yes (Other)
  Sender: FDA-Public Use
  Company Number: US-PFIZER INC-2009234899

PATIENT
  Sex: Male
  Weight: 78.005 kg

DRUGS (3)
  1. ALPRAZOLAM [Suspect]
     Indication: ANXIETY DISORDER
     Dosage: FREQUENCY: 4X/DAY, EVERY DAY;
     Route: 048
  2. ALPRAZOLAM [Suspect]
     Indication: PANIC ATTACK
  3. ALPRAZOLAM [Suspect]
     Indication: ANGER

REACTIONS (5)
  - ANGER [None]
  - DRUG DEPENDENCE [None]
  - DRUG DOSE OMISSION [None]
  - MALAISE [None]
  - NERVOUSNESS [None]
